FAERS Safety Report 10289534 (Version 3)
Quarter: 2014Q4

REPORT INFORMATION
  Report Type: Spontaneous
  Country: GB (occurrence: GB)
  Receive Date: 20140710
  Receipt Date: 20141005
  Transmission Date: 20150528
  Serious: Yes (Life-Threatening, Hospitalization, Disabling, Other)
  Sender: FDA-Public Use
  Company Number: PHFR2014GB004828

PATIENT
  Age: 47 Year
  Sex: Male

DRUGS (5)
  1. AMISULPRIDE [Concomitant]
     Active Substance: AMISULPRIDE
     Indication: PSYCHOTIC DISORDER
     Dosage: 200 MG,
     Route: 048
     Dates: start: 2013, end: 201406
  2. CLOZARIL [Suspect]
     Active Substance: CLOZAPINE
     Indication: PSYCHOTIC DISORDER
  3. HYOSCINE HYDROCHLORIDE [Concomitant]
     Indication: SALIVARY HYPERSECRETION
     Dosage: 600 UG, UNK
     Route: 048
  4. ATENOLOL. [Concomitant]
     Active Substance: ATENOLOL
     Indication: HYPERTENSION
     Dosage: 25 MG, UNK
     Route: 048
  5. CLOZARIL [Suspect]
     Active Substance: CLOZAPINE
     Indication: SCHIZOPHRENIA
     Dosage: 500 MG,
     Route: 048
     Dates: start: 20091111

REACTIONS (4)
  - Cerebrovascular accident [Recovered/Resolved with Sequelae]
  - Circulatory collapse [Unknown]
  - Haemorrhagic infarction [Unknown]
  - Atrial septal defect [Unknown]

NARRATIVE: CASE EVENT DATE: 20140613
